FAERS Safety Report 8077777-X (Version None)
Quarter: 2012Q1

REPORT INFORMATION
  Report Type: 
  Country: None (occurrence: None)
  Receive Date: 20120127
  Receipt Date: 20120120
  Transmission Date: 20120608
  Serious: Yes (Other)
  Sender: FDA-Public Use
  Company Number: CHPA2012US001780

PATIENT
  Sex: Female

DRUGS (3)
  1. EXCEDRIN EXTRA STRENGTH TABLETS [Suspect]
     Indication: ARTHRALGIA
     Dosage: UNK DF, UNK
     Route: 048
  2. EXCEDRIN TENSION HEADACHE CAPLETS [Suspect]
     Dosage: UNK DF, PRN
     Route: 048
  3. EXCEDRIN EXTRA STRENGTH TABLETS [Suspect]
     Dosage: 4 DF, UNK
     Route: 048

REACTIONS (1)
  - ARTHROPATHY [None]
